FAERS Safety Report 5326956-0 (Version None)
Quarter: 2007Q2

REPORT INFORMATION
  Report Type: 
  Country: None (occurrence: None)
  Receive Date: 20070220
  Receipt Date: 20070108
  Transmission Date: 20071010
  Serious: No
  Sender: FDA-Public Use
  Company Number: WAES 0701USA00856

PATIENT
  Age: 79 Year
  Sex: Male

DRUGS (6)
  1. JANUVIA [Suspect]
     Indication: DIABETES MELLITUS NON-INSULIN-DEPENDENT
     Dosage: 100 MG/DAILY/PO
     Route: 048
     Dates: start: 20070106
  2. AMARYL [Concomitant]
  3. CARDURA [Concomitant]
  4. NEURONTIN [Concomitant]
  5. PLETAL [Concomitant]
  6. METFORMIN HCL [Concomitant]

REACTIONS (1)
  - BLOOD GLUCOSE DECREASED [None]
